FAERS Safety Report 20163192 (Version 5)
Quarter: 2022Q3

REPORT INFORMATION
  Report Type: Report from Study
  Country: CA (occurrence: CA)
  Receive Date: 20211209
  Receipt Date: 20220913
  Transmission Date: 20221027
  Serious: Yes (Other)
  Sender: FDA-Public Use
  Company Number: CA-SAMSUNG BIOEPIS-SB-2021-19128

PATIENT
  Age: 48 Year
  Sex: Female

DRUGS (6)
  1. RENFLEXIS [Suspect]
     Active Substance: INFLIXIMAB-ABDA
     Indication: Colitis ulcerative
     Dosage: 5 MG/KG
     Route: 042
     Dates: start: 20210121, end: 20210414
  2. RENFLEXIS [Suspect]
     Active Substance: INFLIXIMAB-ABDA
     Dosage: 10 MG/KG
     Route: 042
     Dates: start: 20210609
  3. RENFLEXIS [Suspect]
     Active Substance: INFLIXIMAB-ABDA
     Dosage: UNKNOWN
     Route: 065
  4. RENFLEXIS [Suspect]
     Active Substance: INFLIXIMAB-ABDA
     Dosage: UNKNOWN
     Route: 065
  5. TYLENOL [Suspect]
     Active Substance: ACETAMINOPHEN
     Indication: Premedication
     Route: 048
  6. DIMENHYDRINATE [Suspect]
     Active Substance: DIMENHYDRINATE
     Indication: Premedication
     Route: 048

REACTIONS (14)
  - Dizziness [Recovered/Resolved]
  - Nausea [Recovered/Resolved]
  - Scleral hyperaemia [Recovered/Resolved]
  - Flushing [Recovered/Resolved]
  - Abdominal pain [Unknown]
  - Diarrhoea [Unknown]
  - Vomiting [Unknown]
  - Pallor [Unknown]
  - Bradycardia [Unknown]
  - Hypotension [Unknown]
  - Cold sweat [Recovered/Resolved]
  - Drug ineffective [Unknown]
  - Screaming [Unknown]
  - Anxiety [Unknown]

NARRATIVE: CASE EVENT DATE: 20210804
